FAERS Safety Report 4314042-8 (Version None)
Quarter: 2004Q1

REPORT INFORMATION
  Report Type: 
  Country: None (occurrence: None)
  Receive Date: 20040305
  Receipt Date: 20040224
  Transmission Date: 20041129
  Serious: Yes (Other)
  Sender: FDA-Public Use
  Company Number: JP-JNJFOC-20031104079

PATIENT
  Age: 60 Year
  Sex: Female

DRUGS (2)
  1. RISPERDAL [Suspect]
     Indication: SCHIZOPHRENIA
     Dosage: 7 MG, IN 1 DAY, ORAL
     Route: 048
  2. TIMIPERONE (TIMIPERONE) [Concomitant]

REACTIONS (1)
  - LEUKOPENIA [None]
